FAERS Safety Report 5044369-6 (Version None)
Quarter: 2006Q3

REPORT INFORMATION
  Report Type: 
  Country: None (occurrence: None)
  Receive Date: 20060706
  Receipt Date: 20060624
  Transmission Date: 20061208
  Serious: Yes (Other)
  Sender: FDA-Public Use
  Company Number: PHEH2006US08272

PATIENT
  Sex: Male

DRUGS (5)
  1. ZOMETA [Suspect]
     Indication: PROSTATE CANCER METASTATIC
     Dosage: UNK Q3MO
     Route: 042
     Dates: start: 20051022
  2. PACLITAXEL + CARBOPLATIN [Concomitant]
  3. DES [Concomitant]
     Dates: start: 20051120
  4. ARANESP [Concomitant]
     Dates: start: 20060126
  5. NEUPOGEN [Concomitant]
     Dates: start: 20060301

REACTIONS (6)
  - BONE DISORDER [None]
  - DENTAL TREATMENT [None]
  - MASTICATION DISORDER [None]
  - MOUTH ULCERATION [None]
  - ORAL INTAKE REDUCED [None]
  - OSTEONECROSIS [None]
